FAERS Safety Report 4329571-0 (Version None)
Quarter: 2004Q2

REPORT INFORMATION
  Report Type: 
  Country: None (occurrence: None)
  Receive Date: 20040401
  Receipt Date: 20040312
  Transmission Date: 20050107
  Serious: Yes (Other)
  Sender: FDA-Public Use
  Company Number: JP-ROCHE-361532

PATIENT
  Age: 49 Year
  Sex: Male

DRUGS (3)
  1. PANALDINE [Suspect]
     Indication: CORONARY ARTERY STENOSIS
     Dosage: SECOND INDICATION REPORTED AS CORONARY STENTING FOR ANGINA PECTORIS.
     Route: 048
     Dates: start: 20040115, end: 20040131
  2. PANALDINE [Suspect]
     Route: 048
     Dates: start: 20040213, end: 20040219
  3. PLETAL [Concomitant]
     Route: 048
     Dates: start: 20040130

REACTIONS (2)
  - HEPATIC FUNCTION ABNORMAL [None]
  - PYREXIA [None]
